FAERS Safety Report 10183933 (Version 2)
Quarter: 2014Q3

REPORT INFORMATION
  Report Type: Spontaneous
  Country: US (occurrence: US)
  Receive Date: 20140520
  Receipt Date: 20140815
  Transmission Date: 20150326
  Serious: Yes (Death, Other)
  Sender: FDA-Public Use
  Company Number: US-GILEAD-2014-0102885

PATIENT
  Age: 71 Year
  Sex: Female

DRUGS (11)
  1. DILTIAZEM [Concomitant]
     Active Substance: DILTIAZEM
  2. XOPENEX [Concomitant]
     Active Substance: LEVALBUTEROL HYDROCHLORIDE
  3. BUDESONIDE. [Concomitant]
     Active Substance: BUDESONIDE
  4. PRILOSEC [Concomitant]
     Active Substance: OMEPRAZOLE MAGNESIUM
  5. LETAIRIS [Suspect]
     Active Substance: AMBRISENTAN
     Indication: PULMONARY HYPERTENSION
     Route: 065
     Dates: start: 20140311
  6. LANTUS [Concomitant]
     Active Substance: INSULIN GLARGINE
  7. PREDNISONE. [Concomitant]
     Active Substance: PREDNISONE
  8. LETAIRIS [Suspect]
     Active Substance: AMBRISENTAN
     Indication: SCLERODERMA
  9. MEGACE [Concomitant]
     Active Substance: MEGESTROL ACETATE
  10. NOVOLOG [Concomitant]
     Active Substance: INSULIN ASPART
  11. IPRATROPIUM [Concomitant]
     Active Substance: IPRATROPIUM

REACTIONS (1)
  - Respiratory failure [Fatal]

NARRATIVE: CASE EVENT DATE: 20140508
